FAERS Safety Report 13887722 (Version 1)
Quarter: 2017Q3

REPORT INFORMATION
  Report Type: Spontaneous
  Country: US (occurrence: US)
  Receive Date: 20170821
  Receipt Date: 20170821
  Transmission Date: 20171127
  Serious: No
  Sender: FDA-Public Use
  Company Number: US-TEIKOKU PHARMA USA-TPU2017-00449

PATIENT
  Sex: Female

DRUGS (2)
  1. PAIN BLOCK INJECTIONS [Concomitant]
     Indication: BACK PAIN
  2. LIDOCAINE PATCH [Suspect]
     Active Substance: LIDOCAINE
     Indication: BACK PAIN
     Dosage: TRIED UP TO 3 OR 4
     Route: 061
     Dates: start: 201707, end: 20170721

REACTIONS (2)
  - Drug ineffective for unapproved indication [Unknown]
  - Incorrect dose administered [Unknown]
